FAERS Safety Report 13618907 (Version 1)
Quarter: 2017Q2

REPORT INFORMATION
  Report Type: Spontaneous
  Country: US (occurrence: US)
  Receive Date: 20170606
  Receipt Date: 20170606
  Transmission Date: 20170830
  Serious: Yes (Hospitalization)
  Sender: FDA-Public Use
  Company Number: PHHY2017US077761

PATIENT
  Age: 58 Year
  Sex: Female

DRUGS (6)
  1. DIPHENHYDRAMINE. [Suspect]
     Active Substance: DIPHENHYDRAMINE
     Indication: INSOMNIA
     Route: 065
  2. LEVODOPA [Concomitant]
     Active Substance: LEVODOPA
     Indication: PARKINSON^S DISEASE
     Dosage: 450 MG, QD
     Route: 065
  3. DIPHENHYDRAMINE. [Suspect]
     Active Substance: DIPHENHYDRAMINE
     Dosage: 50 MG, QD
     Route: 065
  4. ROPINIROLE. [Concomitant]
     Active Substance: ROPINIROLE
     Indication: RESTLESS LEGS SYNDROME
     Dosage: 4 MG, QD
     Route: 065
  5. LEVODOPA [Concomitant]
     Active Substance: LEVODOPA
     Indication: RESTLESS LEGS SYNDROME
  6. ROPINIROLE. [Concomitant]
     Active Substance: ROPINIROLE
     Indication: PARKINSON^S DISEASE

REACTIONS (2)
  - Drug withdrawal syndrome [Unknown]
  - Dystonia [Recovering/Resolving]
